FAERS Safety Report 8186635-1 (Version None)
Quarter: 2012Q1

REPORT INFORMATION
  Report Type: 
  Country: None (occurrence: None)
  Receive Date: 20120306
  Receipt Date: 20120222
  Transmission Date: 20120608
  Serious: No
  Sender: FDA-Public Use
  Company Number: US-B.I. PHARMACEUTICALS,INC./RIDGEFIELD-2012-BP-03461PF

PATIENT
  Sex: Female
  Weight: 65.76 kg

DRUGS (31)
  1. GEODON [Suspect]
     Route: 065
  2. TRAZODONE HYDROCHLORIDE [Suspect]
     Route: 065
  3. SYMBICORT [Suspect]
     Indication: ASTHMA
     Route: 065
  4. DIVALPROEX SODIUM [Suspect]
     Route: 065
  5. CHANTIX [Suspect]
     Indication: SMOKING CESSATION THERAPY
     Dosage: 0.5 MG
     Route: 048
     Dates: start: 20120201
  6. NORVASC [Suspect]
     Indication: HYPERTENSION
     Route: 065
  7. NIASPAN [Suspect]
     Indication: BLOOD CHOLESTEROL INCREASED
     Dosage: 500 MG
     Route: 065
  8. ADVAIR HFA [Suspect]
     Indication: BRONCHITIS
  9. UNSPECIFIED NEBULIZER [Suspect]
     Indication: EMPHYSEMA
  10. SPIRIVA [Suspect]
     Indication: BRONCHITIS
  11. COMBIVENT [Suspect]
     Indication: ASTHMA
     Route: 065
  12. COREG [Suspect]
     Dosage: 25 MG
     Route: 065
  13. COMBIVENT [Suspect]
     Indication: BRONCHITIS
  14. ASPIRIN [Suspect]
     Dosage: 81 MG
     Route: 065
  15. ADVAIR HFA [Suspect]
     Indication: ASTHMA
     Route: 065
  16. SPIRIVA [Suspect]
     Indication: ASTHMA
  17. SPIRIVA [Suspect]
     Indication: EMPHYSEMA
  18. LISINOPRIL [Suspect]
     Indication: HYPERTENSION
     Dosage: 40 MG
     Route: 065
  19. MEDROXYPROGESTERONE [Suspect]
     Route: 065
  20. SEROQUEL [Suspect]
     Indication: POSTPARTUM STRESS DISORDER
     Dosage: 100 MG
     Route: 065
     Dates: start: 20060101
  21. SYMBICORT [Suspect]
     Indication: EMPHYSEMA
  22. COMBIVENT [Suspect]
     Indication: EMPHYSEMA
  23. CHANTIX [Suspect]
     Route: 065
  24. INDERAL [Suspect]
     Route: 065
  25. SEROQUEL [Suspect]
     Indication: BIPOLAR I DISORDER
  26. ADVAIR HFA [Suspect]
     Indication: EMPHYSEMA
  27. SYMBICORT [Suspect]
     Indication: BRONCHITIS
  28. UNSPECIFIED NEBULIZER [Suspect]
     Indication: BRONCHITIS
  29. ESTRADIOL [Suspect]
     Route: 065
  30. UNSPECIFIED NEBULIZER [Suspect]
     Indication: ASTHMA
  31. UNSPECIFIED PATCH [Suspect]

REACTIONS (14)
  - IRRITABILITY [None]
  - STRESS [None]
  - DIZZINESS [None]
  - GASTRIC DISORDER [None]
  - DRY MOUTH [None]
  - MIGRAINE [None]
  - DISORIENTATION [None]
  - DRUG INEFFECTIVE [None]
  - SOMNOLENCE [None]
  - AGITATION [None]
  - MEMORY IMPAIRMENT [None]
  - NERVOUSNESS [None]
  - TREMOR [None]
  - NAUSEA [None]
